FAERS Safety Report 4512967-1 (Version None)
Quarter: 2004Q4

REPORT INFORMATION
  Report Type: 
  Country: None (occurrence: None)
  Receive Date: 20041124
  Receipt Date: 20041124
  Transmission Date: 20050328
  Serious: Yes (Hospitalization)
  Sender: FDA-Public Use
  Company Number: None

PATIENT
  Age: 31 Year
  Sex: Male
  Weight: 77.1115 kg

DRUGS (3)
  1. CISPLATIN [Suspect]
     Dosage: 196 MG IV - DAY 1
     Route: 042
     Dates: start: 20040824
  2. CISPLATIN [Suspect]
     Dosage: 187 MG IV - DAY 22
     Route: 042
     Dates: start: 20040930
  3. EXTERNAL BEAM RT [Concomitant]

REACTIONS (6)
  - ASTHENIA [None]
  - CATHETER SITE DISCHARGE [None]
  - MARKEDLY REDUCED DIETARY INTAKE [None]
  - NAUSEA [None]
  - POST PROCEDURAL COMPLICATION [None]
  - PYREXIA [None]
